FAERS Safety Report 4952639-2 (Version None)
Quarter: 2006Q1

REPORT INFORMATION
  Report Type: 
  Country: None (occurrence: None)
  Receive Date: 20060317
  Receipt Date: 20040614
  Transmission Date: 20060701
  Serious: Yes (Hospitalization)
  Sender: FDA-Public Use
  Company Number: HQ5843419DEC2002

PATIENT
  Age: 61 Year
  Sex: Male
  Weight: 77 kg

DRUGS (14)
  1. MYLOTARG [Suspect]
     Indication: ACUTE MYELOID LEUKAEMIA
     Dates: start: 20020829, end: 20020829
  2. MYLOTARG [Suspect]
     Indication: ACUTE MYELOID LEUKAEMIA
     Dates: start: 20020923, end: 20020923
  3. PREVACID [Concomitant]
  4. VALTRAX (DIAZEPAM/ISOPROPRAMIDE IODIDE) [Concomitant]
  5. LEVAQUIN [Concomitant]
  6. FLEXERIL [Concomitant]
  7. ATENOL (ATENOLOL) [Concomitant]
  8. ALLOPURINOL [Concomitant]
  9. ALLEGRA [Concomitant]
  10. VANCOMYCIN [Concomitant]
  11. MORPHINE SULFATE [Concomitant]
  12. BENADRYL [Concomitant]
  13. MORPHINE SULFATE [Concomitant]
  14. ZOFRAN [Concomitant]

REACTIONS (16)
  - ACTIVATED PARTIAL THROMBOPLASTIN TIME PROLONGED [None]
  - HAEMATOCRIT DECREASED [None]
  - HAEMATOMA [None]
  - HAEMOGLOBIN DECREASED [None]
  - INTERNATIONAL NORMALISED RATIO INCREASED [None]
  - LUNG INFILTRATION [None]
  - LYMPHOCYTE COUNT INCREASED [None]
  - PLATELET COUNT DECREASED [None]
  - PLEURAL EFFUSION [None]
  - PROCEDURAL PAIN [None]
  - PROCEDURAL SITE REACTION [None]
  - PROTHROMBIN TIME PROLONGED [None]
  - PYREXIA [None]
  - RED BLOOD CELL COUNT DECREASED [None]
  - THORACIC HAEMORRHAGE [None]
  - WHITE BLOOD CELL COUNT DECREASED [None]
